FAERS Safety Report 14304557 (Version 1)
Quarter: 2017Q4

REPORT INFORMATION
  Report Type: Report from Study
  Country: JP (occurrence: JP)
  Receive Date: 20171219
  Receipt Date: 20171219
  Transmission Date: 20180321
  Serious: Yes (Other)
  Sender: FDA-Public Use
  Company Number: JP-OTSUKA-JP-2012-10651

PATIENT
  Age: 58 Year
  Sex: Female

DRUGS (10)
  1. ROHYPNOL [Concomitant]
     Active Substance: FLUNITRAZEPAM
  2. AKINETON [Concomitant]
     Active Substance: BIPERIDEN HYDROCHLORIDE
  3. ABILIFY [Suspect]
     Active Substance: ARIPIPRAZOLE
     Indication: SCHIZOPHRENIA
     Dosage: 12 MG, QD
     Route: 048
     Dates: start: 20110530, end: 20110603
  4. HIRNAMIN [Concomitant]
     Active Substance: PHENOTHIAZINE
  5. RISPERIDONE. [Concomitant]
     Active Substance: RISPERIDONE
  6. ARIPIPRAZOLE. [Suspect]
     Active Substance: ARIPIPRAZOLE
     Indication: SCHIZOPHRENIA
     Dosage: 12 MG, QD
     Route: 048
     Dates: start: 20110530, end: 20110603
  7. RISPERIDONE. [Concomitant]
     Active Substance: RISPERIDONE
  8. LEVOMEPROMAZINE [Concomitant]
     Active Substance: LEVOMEPROMAZINE
  9. LONASEN [Concomitant]
     Active Substance: BLONANSERIN
  10. FLUNITRAZEPAM [Concomitant]
     Active Substance: FLUNITRAZEPAM

REACTIONS (1)
  - Mania [Recovered/Resolved]

NARRATIVE: CASE EVENT DATE: 20110602
